FAERS Safety Report 9144398 (Version 2)
Quarter: 2013Q1

REPORT INFORMATION
  Report Type: Spontaneous
  Country: ES (occurrence: ES)
  Receive Date: 20130306
  Receipt Date: 20130313
  Transmission Date: 20140127
  Serious: Yes (Other)
  Sender: FDA-Public Use
  Company Number: ES-WATSON-2013-03106

PATIENT
  Age: 67 None
  Sex: Male
  Weight: 85 kg

DRUGS (2)
  1. TRELSTAR (WATSON LABORATORIES) [Suspect]
     Indication: PROSTATE CANCER
     Dosage: 22.5 MG ONCE EVERY 6 MONTHS
     Route: 058
     Dates: start: 20120326
  2. TRELSTAR (WATSON LABORATORIES) [Suspect]
     Dosage: 22.5MG, ONCE EVERY 6 MONTHS
     Route: 058
     Dates: start: 20120926

REACTIONS (3)
  - Hypertensive crisis [Not Recovered/Not Resolved]
  - Transaminases increased [Not Recovered/Not Resolved]
  - Metabolic syndrome [Not Recovered/Not Resolved]
